FAERS Safety Report 8523407-X (Version None)
Quarter: 2012Q3

REPORT INFORMATION
  Report Type: 
  Country: None (occurrence: None)
  Receive Date: 20120720
  Receipt Date: 20110428
  Transmission Date: 20120928
  Serious: Yes (Hospitalization, Other)
  Sender: FDA-Public Use
  Company Number: US-BAYER-201017684NA

PATIENT
  Age: 16 Year
  Sex: Female
  Weight: 52 kg

DRUGS (17)
  1. PROMETHAZINE [Concomitant]
  2. TRAMADOL HCL [Concomitant]
  3. DARVOCET [Concomitant]
     Indication: MIGRAINE
  4. PEG-3350 AND ELECTROLYTES [Concomitant]
     Dates: start: 20080219
  5. PREVACID [Concomitant]
  6. RELPAX [Concomitant]
  7. METOCLOPRAMIDE [Concomitant]
  8. PHENERGAN HCL [Concomitant]
  9. SUCRALFATE [Concomitant]
  10. PANADEINE CO [Concomitant]
  11. YAZ [Suspect]
     Indication: ORAL CONTRACEPTION
     Route: 048
     Dates: start: 20080206, end: 20080701
  12. TOPAMAX [Concomitant]
     Indication: MIGRAINE
     Dates: start: 20070101, end: 20080101
  13. LEVAQUIN [Concomitant]
  14. TYLENOL W/ CODEINE NO. 3 [Concomitant]
  15. AVIANE-28 [Concomitant]
     Dosage: BIRTH CONTROL PILLS
     Route: 048
  16. IMITREX [Concomitant]
  17. ULTRAM [Concomitant]
     Indication: ABDOMINAL PAIN UPPER
     Dates: start: 20070101, end: 20080101

REACTIONS (9)
  - NAUSEA [None]
  - ABDOMINAL PAIN [None]
  - HAEMATEMESIS [None]
  - BILIARY DYSKINESIA [None]
  - GALLBLADDER INJURY [None]
  - DIZZINESS [None]
  - VOMITING [None]
  - DIARRHOEA [None]
  - HAEMATOCHEZIA [None]
